FAERS Safety Report 9221595 (Version 1)
Quarter: 2013Q2

REPORT INFORMATION
  Report Type: Spontaneous
  Country: US (occurrence: US)
  Receive Date: 20130410
  Receipt Date: 20130410
  Transmission Date: 20140414
  Serious: No
  Sender: FDA-Public Use
  Company Number: US-009507513-1303USA014114

PATIENT
  Age: 72 Year
  Sex: Female

DRUGS (2)
  1. NASONEX [Suspect]
     Indication: MIDDLE EAR EFFUSION
     Dosage: 2 SPRAYS INTO EACH NOSTRIL ONCE DAILY
     Route: 045
     Dates: start: 20130319, end: 20130320
  2. SYNTHROID [Concomitant]

REACTIONS (2)
  - Eye swelling [Recovered/Resolved]
  - Urticaria [Recovered/Resolved]
